FAERS Safety Report 23914081 (Version 1)
Quarter: 2024Q2

REPORT INFORMATION
  Report Type: Report from Study
  Country: US (occurrence: US)
  Receive Date: 20240529
  Receipt Date: 20240529
  Transmission Date: 20240716
  Serious: Yes (Hospitalization, Other)
  Sender: FDA-Public Use
  Company Number: US-AMGEN-HZN-2024-005630

PATIENT
  Age: 48 Year
  Sex: Male

DRUGS (1)
  1. KRYSTEXXA [Suspect]
     Active Substance: PEGLOTICASE
     Indication: Product used for unknown indication
     Dosage: UNK
     Route: 065
     Dates: start: 20240307

REACTIONS (2)
  - Cardiac disorder [Not Recovered/Not Resolved]
  - Dialysis [Unknown]

NARRATIVE: CASE EVENT DATE: 20240101
